FAERS Safety Report 7988954-8 (Version None)
Quarter: 2011Q4

REPORT INFORMATION
  Report Type: 
  Country: None (occurrence: None)
  Receive Date: 20111219
  Receipt Date: 20111207
  Transmission Date: 20120403
  Serious: Yes (Hospitalization)
  Sender: FDA-Public Use
  Company Number: US-BAYER-201033111NA

PATIENT
  Age: 51 Year
  Sex: Female
  Weight: 72.562 kg

DRUGS (6)
  1. PROZAC [Concomitant]
  2. YASMIN [Suspect]
     Indication: PREMENSTRUAL SYNDROME
     Dosage: UNK UNK, UNK
     Route: 048
     Dates: start: 20060715, end: 20081002
  3. DROSPIRENONE AND ETHINYL ESTRADIOL [Suspect]
     Indication: PREMENSTRUAL SYNDROME
     Dosage: UNK
     Dates: start: 20060715, end: 20081002
  4. AZITHROMYCIN [Concomitant]
  5. FLUTICASONE PROPIONATE [Concomitant]
  6. SARAFEM [Concomitant]

REACTIONS (8)
  - ANGER [None]
  - PAIN IN EXTREMITY [None]
  - DEEP VEIN THROMBOSIS [None]
  - IRRITABILITY [None]
  - DEPRESSION [None]
  - OEDEMA PERIPHERAL [None]
  - GAIT DISTURBANCE [None]
  - ANXIETY [None]
